FAERS Safety Report 25217130 (Version 1)
Quarter: 2025Q2

REPORT INFORMATION
  Report Type: Spontaneous
  Country: CA (occurrence: CA)
  Receive Date: 20250419
  Receipt Date: 20250419
  Transmission Date: 20250716
  Serious: Yes (Other)
  Sender: CELLTRION
  Company Number: CA-PFIZER INC-202500078716

PATIENT

DRUGS (3)
  1. INFLECTRA [Suspect]
     Active Substance: INFLIXIMAB-DYYB
     Indication: Colitis ulcerative
     Route: 042
     Dates: start: 20250226
  2. INFLECTRA [Suspect]
     Active Substance: INFLIXIMAB-DYYB
     Route: 042
     Dates: start: 20250409
  3. RABEPRAZOLE [Concomitant]
     Active Substance: RABEPRAZOLE

REACTIONS (3)
  - Facial paralysis [Recovered/Resolved]
  - Disease recurrence [Recovered/Resolved]
  - Dysarthria [Recovered/Resolved]
